FAERS Safety Report 25834514 (Version 2)
Quarter: 2025Q3

REPORT INFORMATION
  Report Type: Report from Study
  Country: US (occurrence: US)
  Receive Date: 20250923
  Receipt Date: 20250925
  Transmission Date: 20251020
  Serious: Yes (Other)
  Sender: BRISTOL-MYERS SQUIBB COMPANY
  Company Number: US-BRISTOL-MYERS SQUIBB COMPANY-2025-129917

PATIENT
  Age: 73 Year
  Sex: Female

DRUGS (1)
  1. ELIQUIS [Suspect]
     Active Substance: APIXABAN
     Indication: Coagulopathy
     Dosage: DOSE : 5MG;     FREQ : TWICE A DAY ^EVERY 12 HOURS^
     Dates: start: 2025

REACTIONS (3)
  - Treatment noncompliance [Unknown]
  - Thrombosis [Unknown]
  - Off label use [Unknown]
